FAERS Safety Report 11770954 (Version 4)
Quarter: 2019Q4

REPORT INFORMATION
  Report Type: Spontaneous
  Country: US (occurrence: US)
  Receive Date: 20151123
  Receipt Date: 20191127
  Transmission Date: 20200122
  Serious: No
  Sender: FDA-Public Use
  Company Number: US-JNJFOC-20151020762

PATIENT
  Sex: Male

DRUGS (1)
  1. SIMPONI [Suspect]
     Active Substance: GOLIMUMAB
     Indication: PSORIATIC ARTHROPATHY
     Route: 058
     Dates: start: 201506, end: 201509

REACTIONS (8)
  - Injection site pain [Recovered/Resolved]
  - Neuralgia [Recovered/Resolved]
  - Accidental exposure to product [Unknown]
  - Drug ineffective [Unknown]
  - Injection site erythema [Recovered/Resolved]
  - Drug delivery system malfunction [Unknown]
  - Vertigo positional [Not Recovered/Not Resolved]
  - Feeling cold [Recovered/Resolved]

NARRATIVE: CASE EVENT DATE: 2015
